FAERS Safety Report 7386547-7 (Version None)
Quarter: 2011Q1

REPORT INFORMATION
  Report Type: 
  Country: None (occurrence: None)
  Receive Date: 20110331
  Receipt Date: 20110323
  Transmission Date: 20110831
  Serious: Yes (Hospitalization)
  Sender: FDA-Public Use
  Company Number: US-ROCHE-761387

PATIENT
  Sex: Female

DRUGS (2)
  1. PEGASYS [Suspect]
     Indication: HEPATITIS C
     Dosage: FORM :- PRE FILLED SYRINGE.
     Route: 058
     Dates: start: 20110111
  2. RIBAVIRIN [Suspect]
     Indication: HEPATITIS C
     Dosage: DIVIDED DOSES
     Route: 048
     Dates: start: 20110111

REACTIONS (10)
  - FALL [None]
  - ANAEMIA [None]
  - LIMB INJURY [None]
  - CRYING [None]
  - APHTHOUS STOMATITIS [None]
  - DISORIENTATION [None]
  - TOOTHACHE [None]
  - INJECTION SITE HAEMATOMA [None]
  - IRRITABILITY [None]
  - BIPOLAR DISORDER [None]
